FAERS Safety Report 17520605 (Version 5)
Quarter: 2020Q2

REPORT INFORMATION
  Report Type: Report from Study
  Country: DE (occurrence: DE)
  Receive Date: 20200309
  Receipt Date: 20200521
  Transmission Date: 20200713
  Serious: Yes (Death, Hospitalization, Other)
  Sender: FDA-Public Use
  Company Number: DE-CELGENEUS-DEU-20200300566

PATIENT
  Age: 67 Year
  Sex: Male

DRUGS (24)
  1. DIMETINDEN [Concomitant]
     Active Substance: DIMETHINDENE
     Route: 041
     Dates: start: 20190206, end: 20190206
  2. CC-5013 [Suspect]
     Active Substance: LENALIDOMIDE
     Dosage: 20 MILLIGRAM
     Route: 048
     Dates: start: 20191211, end: 20191231
  3. RITUXIMAB. [Suspect]
     Active Substance: RITUXIMAB
     Route: 041
     Dates: start: 20200304, end: 20200304
  4. DIMETINDEN [Concomitant]
     Active Substance: DIMETHINDENE
     Indication: PREMEDICATION
     Route: 041
     Dates: start: 20190123, end: 20190123
  5. DIMETINDEN [Concomitant]
     Active Substance: DIMETHINDENE
     Route: 041
     Dates: start: 20190130, end: 20190130
  6. DIMETINDEN [Concomitant]
     Active Substance: DIMETHINDENE
     Route: 041
     Dates: start: 20190320, end: 20190320
  7. PARACETAMOL [Concomitant]
     Active Substance: ACETAMINOPHEN
     Indication: PREMEDICATION
     Route: 048
     Dates: start: 20190123, end: 20190123
  8. PARACETAMOL [Concomitant]
     Active Substance: ACETAMINOPHEN
     Route: 048
     Dates: start: 20190213, end: 20190213
  9. ACETYLSALICYLIC ACID [Concomitant]
     Active Substance: ASPIRIN
     Indication: THROMBOSIS PROPHYLAXIS
     Dosage: 100 MILLIGRAM
     Route: 048
     Dates: start: 20190123, end: 20200204
  10. DIMETINDEN [Concomitant]
     Active Substance: DIMETHINDENE
     Route: 041
     Dates: start: 20190213, end: 20190213
  11. CC-5013 [Suspect]
     Active Substance: LENALIDOMIDE
     Indication: MANTLE CELL LYMPHOMA
     Dosage: 20 MILLIGRAM
     Route: 048
     Dates: start: 20190123, end: 20190212
  12. PREDNISONE. [Concomitant]
     Active Substance: PREDNISONE
     Indication: PREMEDICATION
     Route: 041
     Dates: start: 20190123, end: 20190123
  13. PREDNISONE. [Concomitant]
     Active Substance: PREDNISONE
     Route: 041
     Dates: start: 20190206, end: 20190206
  14. PREDNISONE. [Concomitant]
     Active Substance: PREDNISONE
     Route: 041
     Dates: start: 20190320, end: 20190323
  15. PARACETAMOL [Concomitant]
     Active Substance: ACETAMINOPHEN
     Route: 048
     Dates: start: 20190130, end: 20190130
  16. AMOXI-CLAVULANSTADA [Concomitant]
     Indication: BRONCHITIS
     Dosage: 875/125MG
     Route: 048
     Dates: start: 20190206, end: 20190402
  17. RITUXIMAB. [Suspect]
     Active Substance: RITUXIMAB
     Route: 041
     Dates: start: 20200108
  18. PREDNISONE. [Concomitant]
     Active Substance: PREDNISONE
     Route: 041
     Dates: start: 20190213, end: 20190213
  19. DIMETINDEN [Concomitant]
     Active Substance: DIMETHINDENE
     Route: 041
     Dates: start: 20190515, end: 20190515
  20. PREDNISONE. [Concomitant]
     Active Substance: PREDNISONE
     Route: 041
     Dates: start: 20190130, end: 20190130
  21. PARACETAMOL [Concomitant]
     Active Substance: ACETAMINOPHEN
     Route: 048
     Dates: start: 20190320, end: 20190320
  22. ACIC [Concomitant]
     Active Substance: ACYCLOVIR
     Indication: INFECTION PROPHYLAXIS
     Dosage: 800 MILLIGRAM
     Route: 048
     Dates: start: 20190123, end: 20200204
  23. RITUXIMAB. [Suspect]
     Active Substance: RITUXIMAB
     Indication: MANTLE CELL LYMPHOMA
     Route: 041
     Dates: start: 20190123, end: 20190123
  24. COTRIM FORTE [Concomitant]
     Active Substance: SULFAMETHOXAZOLE\TRIMETHOPRIM
     Indication: INFECTION PROPHYLAXIS
     Dosage: 800/160 MG
     Route: 048
     Dates: start: 20190123

REACTIONS (3)
  - Haemorrhage intracranial [Fatal]
  - Hypertension [Fatal]
  - Sebaceous carcinoma [Recovered/Resolved]

NARRATIVE: CASE EVENT DATE: 20200214
